FAERS Safety Report 6489875-2 (Version None)
Quarter: 2009Q4

REPORT INFORMATION
  Report Type: 
  Country: None (occurrence: None)
  Receive Date: 20091210
  Receipt Date: 20091210
  Transmission Date: 20100525
  Serious: No
  Sender: FDA-Public Use
  Company Number: None

PATIENT
  Sex: Male
  Weight: 136.0791 kg

DRUGS (1)
  1. COLD REMEDY CHEWABLES [Suspect]
     Dosage: QID FOR 2 DAYS
     Dates: start: 20091028, end: 20091030

REACTIONS (1)
  - DYSGEUSIA [None]
